FAERS Safety Report 17183724 (Version 4)
Quarter: 2020Q1

REPORT INFORMATION
  Report Type: Report from Study
  Country: US (occurrence: US)
  Receive Date: 20191220
  Receipt Date: 20200228
  Transmission Date: 20200409
  Serious: Yes (Hospitalization, Other)
  Sender: FDA-Public Use
  Company Number: US-GILEAD-2019-0443843

PATIENT
  Age: 72 Year
  Sex: Female
  Weight: 88.89 kg

DRUGS (31)
  1. TRAZODONE [Concomitant]
     Active Substance: TRAZODONE HYDROCHLORIDE
     Dosage: 100 ML
  2. INCRUSE ELLIPTA [Concomitant]
     Active Substance: UMECLIDINIUM BROMIDE
  3. MAGNESIUM GLUCONATE [Concomitant]
     Active Substance: MAGNESIUM GLUCONATE
  4. OLOPATADINE. [Concomitant]
     Active Substance: OLOPATADINE
  5. SYNTHROID [Concomitant]
     Active Substance: LEVOTHYROXINE SODIUM
  6. BUPROPION. [Concomitant]
     Active Substance: BUPROPION
  7. DICLOFENAC [Concomitant]
     Active Substance: DICLOFENAC
  8. DIGOXIN. [Concomitant]
     Active Substance: DIGOXIN
  9. VITAMIN D3 [Concomitant]
     Active Substance: CHOLECALCIFEROL
  10. AMBRISENTAN [Suspect]
     Active Substance: AMBRISENTAN
     Indication: HEART DISEASE CONGENITAL
  11. METOPROLOL TARTRATE. [Concomitant]
     Active Substance: METOPROLOL TARTRATE
  12. ADCIRCA [Concomitant]
     Active Substance: TADALAFIL
     Dosage: UNK
     Dates: start: 2013
  13. SPIRIVA [Concomitant]
     Active Substance: TIOTROPIUM BROMIDE MONOHYDRATE
  14. SPIRONOLACTONE. [Concomitant]
     Active Substance: SPIRONOLACTONE
     Dosage: UNK
     Dates: end: 201912
  15. AMITIZA [Concomitant]
     Active Substance: LUBIPROSTONE
  16. LEVALBUTEROL [LEVOSALBUTAMOL HYDROCHLORIDE] [Concomitant]
     Active Substance: LEVALBUTEROL HYDROCHLORIDE
  17. LEVOTHYROXINE. [Concomitant]
     Active Substance: LEVOTHYROXINE
  18. PANTOPRAZOLE [Concomitant]
     Active Substance: PANTOPRAZOLE
  19. PRAMIPEXOLE. [Concomitant]
     Active Substance: PRAMIPEXOLE
  20. TRAMADOL. [Concomitant]
     Active Substance: TRAMADOL
  21. OXYGEN. [Concomitant]
     Active Substance: OXYGEN
  22. ATROVENT HFA [Concomitant]
     Active Substance: IPRATROPIUM BROMIDE
  23. ELIQUIS [Concomitant]
     Active Substance: APIXABAN
  24. LACTULOSE. [Concomitant]
     Active Substance: LACTULOSE
  25. SILDENAFIL. [Concomitant]
     Active Substance: SILDENAFIL
  26. CYMBALTA [Concomitant]
     Active Substance: DULOXETINE HYDROCHLORIDE
  27. AMBRISENTAN [Suspect]
     Active Substance: AMBRISENTAN
     Indication: ATRIAL SEPTAL DEFECT REPAIR
     Dosage: 5 MG, QD
     Route: 048
     Dates: start: 20170818
  28. REVATIO [Concomitant]
     Active Substance: SILDENAFIL CITRATE
     Dosage: UNK
     Dates: start: 2013
  29. AEROSPAN [Concomitant]
     Active Substance: FLUNISOLIDE
     Dosage: UNK
  30. MULTIVITAMINUM [Concomitant]
     Active Substance: VITAMINS
  31. PROCHLORPERAZINE. [Concomitant]
     Active Substance: PROCHLORPERAZINE

REACTIONS (10)
  - Presyncope [Unknown]
  - Pruritus [Not Recovered/Not Resolved]
  - Weight increased [Unknown]
  - Hypercapnia [Unknown]
  - Fluid overload [Unknown]
  - Palpitations [Unknown]
  - Acute respiratory failure [Recovered/Resolved]
  - Cardiac failure congestive [Unknown]
  - Chest pain [Recovered/Resolved]
  - Oedema [Recovered/Resolved]
